FAERS Safety Report 6674968-7 (Version None)
Quarter: 2010Q1

REPORT INFORMATION
  Report Type: 
  Country: None (occurrence: None)
  Receive Date: 20100331
  Receipt Date: 20100112
  Transmission Date: 20100710
  Serious: Yes (Other)
  Sender: FDA-Public Use
  Company Number: 2009300630

PATIENT
  Age: 73 Year
  Sex: Male
  Weight: 98 kg

DRUGS (3)
  1. SUTENT [Suspect]
     Indication: RENAL CANCER
     Dosage: 50 MG
  2. SYNTHROID [Concomitant]
  3. LASIX [Concomitant]

REACTIONS (2)
  - HYPOTHYROIDISM [None]
  - OEDEMA PERIPHERAL [None]
